FAERS Safety Report 10008177 (Version 1)
Quarter: 2014Q1

REPORT INFORMATION
  Report Type: Spontaneous
  Country: FR (occurrence: FR)
  Receive Date: 20140313
  Receipt Date: 20140313
  Transmission Date: 20141002
  Serious: Yes (Hospitalization)
  Sender: FDA-Public Use
  Company Number: FR-009507513-1403FRA003401

PATIENT
  Age: 30 Year
  Sex: Female

DRUGS (2)
  1. TEMODAL [Suspect]
     Dosage: 168 MG, QD
     Route: 048
     Dates: start: 20140203
  2. IRINOTECAN HYDROCHLORIDE [Suspect]
     Dosage: 33.6 MG, QD
     Route: 042
     Dates: start: 20140203

REACTIONS (2)
  - Hepatocellular injury [Recovered/Resolved]
  - Cholestasis [Recovered/Resolved]
